FAERS Safety Report 16575182 (Version 1)
Quarter: 2019Q3

REPORT INFORMATION
  Report Type: Spontaneous
  Country: US (occurrence: US)
  Receive Date: 20190715
  Receipt Date: 20190715
  Transmission Date: 20191004
  Serious: Yes (Death)
  Sender: FDA-Public Use
  Company Number: PHEH2019US029306

PATIENT
  Age: 61 Year
  Sex: Female

DRUGS (4)
  1. ABILIFY [Suspect]
     Active Substance: ARIPIPRAZOLE
     Indication: MAJOR DEPRESSION
     Dosage: 5 MG, UNK
     Route: 065
  2. REXULTI [Suspect]
     Active Substance: BREXPIPRAZOLE
     Indication: MAJOR DEPRESSION
     Dosage: UNK
     Route: 065
  3. TRINTELLIX [Suspect]
     Active Substance: VORTIOXETINE HYDROBROMIDE
     Indication: MAJOR DEPRESSION
     Dosage: 15 MG, QD
     Route: 048
     Dates: start: 201904
  4. TRILEPTAL [Suspect]
     Active Substance: OXCARBAZEPINE
     Indication: MAJOR DEPRESSION
     Route: 065

REACTIONS (3)
  - Mania [Unknown]
  - Completed suicide [Fatal]
  - Gun shot wound [Fatal]

NARRATIVE: CASE EVENT DATE: 20190519
